FAERS Safety Report 17192674 (Version 2)
Quarter: 2020Q2

REPORT INFORMATION
  Report Type: Report from Study
  Country: US (occurrence: US)
  Receive Date: 20191223
  Receipt Date: 20200410
  Transmission Date: 20200713
  Serious: No
  Sender: FDA-Public Use
  Company Number: US-SA-2019SA351157

PATIENT
  Age: 54 Year
  Sex: Female

DRUGS (1)
  1. TERIFLUNOMIDE. [Suspect]
     Active Substance: TERIFLUNOMIDE
     Indication: MULTIPLE SCLEROSIS
     Dosage: 14 MG, QD
     Route: 048
     Dates: start: 20190502

REACTIONS (5)
  - Menopause [Not Recovered/Not Resolved]
  - Motion sickness [Recovered/Resolved]
  - Nausea [Recovered/Resolved]
  - Product dose omission [Unknown]
  - Poor quality sleep [Not Recovered/Not Resolved]
